FAERS Safety Report 15265420 (Version 2)
Quarter: 2018Q4

REPORT INFORMATION
  Report Type: Report from Study
  Country: IT (occurrence: IT)
  Receive Date: 20180810
  Receipt Date: 20181005
  Transmission Date: 20190204
  Serious: Yes (Hospitalization)
  Sender: FDA-Public Use
  Company Number: IT-PURDUE-GBR-2018-0058483

PATIENT
  Age: 73 Year
  Sex: Female

DRUGS (4)
  1. DEPALGOS [Suspect]
     Active Substance: ACETAMINOPHEN\OXYCODONE HYDROCHLORIDE
     Indication: SCIATICA
     Dosage: 4 DF, DAILY
     Route: 048
     Dates: end: 20180325
  2. TARGIN [Suspect]
     Active Substance: NALOXONE HYDROCHLORIDE\OXYCODONE HYDROCHLORIDE
     Indication: SCIATICA
     Dosage: 2 DF, DAILY (STRENGHT 20MG/10MG)
     Route: 048
     Dates: end: 20180325
  3. CYMBALTA [Concomitant]
     Active Substance: DULOXETINE HYDROCHLORIDE
     Dosage: 60 MG, UNK
     Route: 048
  4. DIAMICRON [Concomitant]
     Active Substance: GLICLAZIDE

REACTIONS (6)
  - Sopor [Recovering/Resolving]
  - Dysarthria [Recovering/Resolving]
  - Bradykinesia [Recovering/Resolving]
  - Bradypnoea [Recovering/Resolving]
  - Muscular weakness [Recovering/Resolving]
  - Asthenia [Recovering/Resolving]

NARRATIVE: CASE EVENT DATE: 20180325
